FAERS Safety Report 11296470 (Version 1)
Quarter: 2015Q3

REPORT INFORMATION
  Report Type: Spontaneous
  Country: US (occurrence: US)
  Receive Date: 20150722
  Receipt Date: 20150722
  Transmission Date: 20151125
  Serious: Yes (Hospitalization, Other)
  Sender: FDA-Public Use
  Company Number: US-ELI_LILLY_AND_COMPANY-US201003003633

PATIENT
  Age: 55 Year
  Sex: Male

DRUGS (2)
  1. EFFIENT [Suspect]
     Active Substance: PRASUGREL HYDROCHLORIDE
     Indication: PERCUTANEOUS CORONARY INTERVENTION
     Dosage: 1 D/F, LOADING DOSE
     Dates: start: 20100302
  2. EFFIENT [Suspect]
     Active Substance: PRASUGREL HYDROCHLORIDE
     Dosage: 10 MG, UNK
     Dates: start: 201003, end: 201003

REACTIONS (3)
  - Rash erythematous [Unknown]
  - Puncture site haemorrhage [Unknown]
  - Pruritus [Unknown]

NARRATIVE: CASE EVENT DATE: 201003
